FAERS Safety Report 6312344-7 (Version None)
Quarter: 2009Q3

REPORT INFORMATION
  Report Type: 
  Country: None (occurrence: None)
  Receive Date: 20090817
  Receipt Date: 20090805
  Transmission Date: 20100115
  Serious: Yes (Hospitalization, Other)
  Sender: FDA-Public Use
  Company Number: CH-ELI_LILLY_AND_COMPANY-CH200907000840

PATIENT
  Age: 58 Year
  Sex: Female
  Weight: 69 kg

DRUGS (6)
  1. CYMBALTA [Suspect]
     Indication: DEPRESSION
     Dosage: 60 MG, EACH MORNING
     Route: 048
     Dates: start: 20070920, end: 20090408
  2. CYMBALTA [Suspect]
     Dosage: 30 MG, DAILY (1/D)
     Route: 048
     Dates: start: 20090409, end: 20090702
  3. TRANXILIUM [Concomitant]
     Dosage: 40 MG, AS NEEDED RARELY USED
     Route: 048
  4. CRESTOR [Concomitant]
     Dosage: 10 MG, DAILY (1/D)
     Route: 048
     Dates: start: 20090610, end: 20090702
  5. VOLTAREN [Concomitant]
     Indication: BACK PAIN
     Dosage: 50 MG, AS NEEDED
  6. PANTOZOL [Concomitant]
     Dosage: 20 MG, AS NEEDED

REACTIONS (3)
  - LIVER DISORDER [None]
  - PULMONARY EMBOLISM [None]
  - TOOTH EXTRACTION [None]
